FAERS Safety Report 4606207-2 (Version None)
Quarter: 2005Q1

REPORT INFORMATION
  Report Type: 
  Country: None (occurrence: None)
  Receive Date: 20050115
  Receipt Date: 20040414
  Transmission Date: 20050727
  Serious: Yes (Other)
  Sender: FDA-Public Use
  Company Number: A03200401166

PATIENT
  Age: 40 Year
  Sex: Female

DRUGS (7)
  1. AMBIEN [Suspect]
     Indication: INSOMNIA
     Dosage: ORAL
     Route: 048
  2. AMBIEN [Suspect]
     Indication: INSOMNIA
     Dosage: 10 MG ONCE   -  ORAL
     Route: 048
     Dates: start: 20040301, end: 20040301
  3. BUPROPION HYDROCHLORIDE [Concomitant]
  4. TOPIRAMATE [Concomitant]
  5. LEVOTHYROXINE SODIUM [Concomitant]
  6. LEXAPRO [Concomitant]
  7. CLONAZEPAM [Concomitant]

REACTIONS (3)
  - AMNESIA [None]
  - HALLUCINATION [None]
  - SLEEP WALKING [None]
